FAERS Safety Report 9283731 (Version 1)
Quarter: 2013Q2

REPORT INFORMATION
  Report Type: Spontaneous
  Country: CZ (occurrence: CZ)
  Receive Date: 20130510
  Receipt Date: 20130510
  Transmission Date: 20140414
  Serious: Yes (Hospitalization)
  Sender: FDA-Public Use
  Company Number: CZ-GLAXOSMITHKLINE-B0890565A

PATIENT
  Age: 64 Year
  Sex: Female

DRUGS (4)
  1. TYVERB [Suspect]
     Indication: BREAST CANCER
     Dates: start: 20100624, end: 20120604
  2. XELODA [Concomitant]
     Dosage: 3500MG PER DAY
     Route: 048
  3. TENORMIN [Concomitant]
     Dosage: 50MG PER DAY
     Route: 048
  4. LETROX [Concomitant]
     Dosage: 50MCG PER DAY
     Route: 048

REACTIONS (6)
  - Hyperbilirubinaemia [Recovered/Resolved]
  - Renal failure [Recovered/Resolved]
  - Diarrhoea [Recovered/Resolved]
  - Hypokalaemia [Recovered/Resolved]
  - Dehydration [Recovered/Resolved]
  - Palmar-plantar erythrodysaesthesia syndrome [Recovered/Resolved]
